FAERS Safety Report 6070290-0 (Version None)
Quarter: 2009Q1

REPORT INFORMATION
  Report Type: 
  Country: None (occurrence: None)
  Receive Date: 20090209
  Receipt Date: 20090130
  Transmission Date: 20090719
  Serious: Yes (Other)
  Sender: FDA-Public Use
  Company Number: CA-ABBOTT-08P-028-0486891-00

PATIENT
  Sex: Female
  Weight: 101.7 kg

DRUGS (9)
  1. HUMIRA [Suspect]
     Indication: RHEUMATOID ARTHRITIS
     Route: 058
     Dates: start: 20080630
  2. HYZAAR [Concomitant]
     Indication: DRUG USE FOR UNKNOWN INDICATION
  3. NEXIUM [Concomitant]
     Indication: DRUG USE FOR UNKNOWN INDICATION
  4. PLAQUENIL [Concomitant]
     Indication: DRUG USE FOR UNKNOWN INDICATION
  5. PREDNISONE [Concomitant]
     Indication: DRUG USE FOR UNKNOWN INDICATION
  6. URSODIOL [Concomitant]
     Indication: DRUG USE FOR UNKNOWN INDICATION
  7. MACROBID [Concomitant]
     Indication: DRUG USE FOR UNKNOWN INDICATION
  8. URSODIOL [Concomitant]
  9. MULTIVITAMINS AND VITAMIN D, CALCIUM AND OMEGA 3 [Concomitant]
     Indication: DRUG USE FOR UNKNOWN INDICATION

REACTIONS (2)
  - BLOOD IRON DECREASED [None]
  - TOOTH EXTRACTION [None]
